FAERS Safety Report 14679720 (Version 1)
Quarter: 2018Q1

REPORT INFORMATION
  Report Type: Report from Study
  Country: CN (occurrence: CN)
  Receive Date: 20180326
  Receipt Date: 20180326
  Transmission Date: 20180509
  Serious: Yes (Hospitalization)
  Sender: FDA-Public Use
  Company Number: CN-AMGEN-CHNCT2018040669

PATIENT
  Age: 60 Year
  Sex: Male

DRUGS (12)
  1. CALCITRIOL. [Concomitant]
     Active Substance: CALCITRIOL
     Indication: HYPERPARATHYROIDISM
     Dosage: 0.25 MUG, QD
     Route: 065
     Dates: start: 2014
  2. VITAMIN A [Concomitant]
     Active Substance: VITAMIN A
     Indication: PSORIASIS
     Dosage: 0.5 G, BID
     Route: 065
     Dates: start: 20171103
  3. MICONAZOLE. [Concomitant]
     Active Substance: MICONAZOLE
     Indication: PSORIASIS
     Dosage: 0.5 G, BID
     Route: 065
     Dates: start: 20171130
  4. UREA. [Concomitant]
     Active Substance: UREA
     Indication: PSORIASIS
     Dosage: 0.5 G, BID
     Route: 065
     Dates: start: 20171130
  5. METOPROLOL. [Concomitant]
     Active Substance: METOPROLOL
     Indication: HYPERTENSION
     Dosage: 25 MG, BID
     Route: 065
     Dates: start: 1992
  6. CAPTOPRIL. [Concomitant]
     Active Substance: CAPTOPRIL
     Indication: HYPERTENSION
     Dosage: 25 MG, Q8H
     Route: 065
     Dates: start: 2008
  7. CALCIUM CARBONATE. [Concomitant]
     Active Substance: CALCIUM CARBONATE
     Indication: HYPERPHOSPHATAEMIA
     Dosage: 2 G, TID
     Route: 065
     Dates: start: 2014
  8. CINACALCET HCL [Suspect]
     Active Substance: CINACALCET HYDROCHLORIDE
     Dosage: 50 MG, QD
     Route: 048
     Dates: start: 20170821
  9. ASPIRIN. [Concomitant]
     Active Substance: ASPIRIN
     Indication: THROMBOSIS PROPHYLAXIS
     Dosage: 0.1 G, QD
     Route: 065
     Dates: start: 2008
  10. CINACALCET HCL [Suspect]
     Active Substance: CINACALCET HYDROCHLORIDE
     Indication: HYPERPARATHYROIDISM SECONDARY
     Dosage: 25 MG, QD
     Route: 048
     Dates: start: 20170724, end: 20170820
  11. CLONIDINE. [Concomitant]
     Active Substance: CLONIDINE
     Indication: HYPERTENSION
     Dosage: 75 MUG, TID
     Route: 065
     Dates: start: 2013
  12. NIFEDIPINE. [Concomitant]
     Active Substance: NIFEDIPINE
     Indication: HYPERTENSION
     Dosage: 20 MG, BID
     Route: 065
     Dates: start: 20171108

REACTIONS (1)
  - Psoriasis [Unknown]

NARRATIVE: CASE EVENT DATE: 20180313
